FAERS Safety Report 20752992 (Version 1)
Quarter: 2022Q2

REPORT INFORMATION
  Report Type: Spontaneous
  Country: US (occurrence: None)
  Receive Date: 20220426
  Receipt Date: 20220426
  Transmission Date: 20220721
  Serious: No
  Sender: FDA-Public Use
  Company Number: US-ROCHE-2953308

PATIENT
  Sex: Female

DRUGS (8)
  1. ESBRIET [Suspect]
     Active Substance: PIRFENIDONE
     Indication: Idiopathic pulmonary fibrosis
     Route: 048
     Dates: start: 201908, end: 202109
  2. AMITRIPTYLINE [Concomitant]
     Active Substance: AMITRIPTYLINE
  3. HYDROCHLOROTHIAZIDE [Concomitant]
     Active Substance: HYDROCHLOROTHIAZIDE
  4. PANTOPRAZOLE [Concomitant]
     Active Substance: PANTOPRAZOLE
  5. VENTOLIN HFA [Concomitant]
     Active Substance: ALBUTEROL SULFATE
     Dosage: VENTOLIN HFA AER108 (90)
  6. CALCIUM [Concomitant]
     Active Substance: CALCIUM
  7. BIOTIN [Concomitant]
     Active Substance: BIOTIN
     Dosage: DOSE 1000 MCG
  8. OFEV [Concomitant]
     Active Substance: NINTEDANIB

REACTIONS (2)
  - Drug ineffective [Unknown]
  - No adverse event [Unknown]
